FAERS Safety Report 13377744 (Version 1)
Quarter: 2017Q1

REPORT INFORMATION
  Report Type: Spontaneous
  Country: AR (occurrence: AR)
  Receive Date: 20170328
  Receipt Date: 20170328
  Transmission Date: 20170429
  Serious: Yes (Other)
  Sender: FDA-Public Use
  Company Number: AR-PFIZER INC-2016605269

PATIENT
  Age: 83 Year
  Sex: Female

DRUGS (2)
  1. IBRANCE [Suspect]
     Active Substance: PALBOCICLIB
     Indication: BREAST CANCER METASTATIC
     Dosage: 125 MG, DAILY
     Dates: start: 20161118
  2. IBRANCE [Suspect]
     Active Substance: PALBOCICLIB
     Dosage: 100 MG, CYCLIC (3/1 SCHEME)
     Dates: start: 20161118

REACTIONS (26)
  - Hypersensitivity [Unknown]
  - Pulmonary mass [Not Recovered/Not Resolved]
  - Rash [Unknown]
  - Diabetes mellitus [Unknown]
  - Nipple pain [Not Recovered/Not Resolved]
  - Haematoma [Unknown]
  - Breast discharge [Not Recovered/Not Resolved]
  - Neoplasm progression [Not Recovered/Not Resolved]
  - Pulmonary pain [Not Recovered/Not Resolved]
  - Peripheral swelling [Not Recovered/Not Resolved]
  - Oliguria [Unknown]
  - Dyspnoea [Unknown]
  - Neutropenia [Recovering/Resolving]
  - Memory impairment [Unknown]
  - Feeling abnormal [Unknown]
  - Dyspnoea [Not Recovered/Not Resolved]
  - Urticaria [Recovered/Resolved]
  - Pruritus [Not Recovered/Not Resolved]
  - Hepatic pain [Not Recovered/Not Resolved]
  - Lung disorder [Not Recovered/Not Resolved]
  - Tendon disorder [Unknown]
  - Visual impairment [Unknown]
  - Hypoacusis [Unknown]
  - Decreased immune responsiveness [Recovering/Resolving]
  - Fatigue [Unknown]
  - Pain in extremity [Unknown]

NARRATIVE: CASE EVENT DATE: 2016
